FAERS Safety Report 14166946 (Version 8)
Quarter: 2018Q2

REPORT INFORMATION
  Report Type: Spontaneous
  Country: PL (occurrence: PL)
  Receive Date: 20171108
  Receipt Date: 20180606
  Transmission Date: 20180711
  Serious: Yes (Hospitalization, Other)
  Sender: FDA-Public Use
  Company Number: PL-MYLANLABS-2017M1069166

PATIENT
  Age: 61 Year
  Sex: Male

DRUGS (19)
  1. DEXAMETHASONE. [Suspect]
     Active Substance: DEXAMETHASONE
     Indication: PRODUCT USED FOR UNKNOWN INDICATION
     Route: 065
  2. MANNITOL. [Suspect]
     Active Substance: MANNITOL
     Indication: SPINAL CORD ISCHAEMIA
     Route: 042
  3. TORASEMIDE [Suspect]
     Active Substance: TORSEMIDE
     Indication: SPINAL CORD ISCHAEMIA
     Dosage: UNK
  4. ENOXAPARIN [Suspect]
     Active Substance: ENOXAPARIN
     Indication: SPINAL CORD ISCHAEMIA
     Dosage: UNK
     Route: 065
  5. ASPIRIN. [Suspect]
     Active Substance: ASPIRIN
     Indication: SPINAL CORD ISCHAEMIA
     Route: 065
  6. DEXAMETHASONE. [Suspect]
     Active Substance: DEXAMETHASONE
     Indication: SPINAL CORD ISCHAEMIA
     Dosage: UNK
  7. MANNITOL. [Suspect]
     Active Substance: MANNITOL
     Indication: SPINAL CORD ISCHAEMIA
     Dosage: UNK
     Route: 042
  8. ALTEPLASE RECOMBINANT [Concomitant]
     Dosage: 0.9 MG/KG, 90 MIN SINCE ONSET OF SYMPTOMS
     Route: 042
  9. RAMIPRIL. [Suspect]
     Active Substance: RAMIPRIL
     Indication: SPINAL CORD ISCHAEMIA
     Dosage: UNK
     Route: 065
  10. RAMIPRIL. [Suspect]
     Active Substance: RAMIPRIL
     Route: 065
  11. DEXAVEN [Suspect]
     Active Substance: DEXAMETHASONE
     Indication: SPINAL CORD ISCHAEMIA
     Dosage: UNK
     Route: 042
  12. ALTEPLASE RECOMBINANT [Concomitant]
     Indication: PRODUCT USED FOR UNKNOWN INDICATION
     Dosage: 0.9 MG/KG, UNK (90 MIN SINCE ONSET OF SYMPTOMS)
     Route: 042
  13. ATORVASTATIN [Suspect]
     Active Substance: ATORVASTATIN
     Indication: SPINAL CORD ISCHAEMIA
     Dosage: UNK
  14. ATORVASTATIN [Suspect]
     Active Substance: ATORVASTATIN
     Route: 065
  15. ACETYLSALICYLIC ACID [Suspect]
     Active Substance: ASPIRIN
     Indication: SPINAL CORD ISCHAEMIA
     Dosage: UNK
     Route: 065
  16. TORASEMIDE [Suspect]
     Active Substance: TORSEMIDE
     Route: 065
  17. ENOXAPARIN [Suspect]
     Active Substance: ENOXAPARIN
     Route: 065
  18. DEXAVEN [Suspect]
     Active Substance: DEXAMETHASONE
     Route: 042
  19. ASPIRIN                            /00002701/ [Suspect]
     Active Substance: ASPIRIN
     Indication: PRODUCT USED FOR UNKNOWN INDICATION
     Dosage: UNK

REACTIONS (3)
  - Condition aggravated [Recovering/Resolving]
  - Paralysis [Recovered/Resolved]
  - Paresis [Recovering/Resolving]

NARRATIVE: CASE EVENT DATE: 20171025
